FAERS Safety Report 17503607 (Version 1)
Quarter: 2020Q1

REPORT INFORMATION
  Report Type: Other
  Country: US (occurrence: US)
  Receive Date: 20200305
  Receipt Date: 20200305
  Transmission Date: 20200409
  Serious: Yes (Hospitalization, Other)
  Sender: FDA-Public Use
  Company Number: US-KALEO, INC.-2020KL000031

PATIENT
  Age: 34 Year
  Sex: Male

DRUGS (1)
  1. EVZIO [Suspect]
     Active Substance: NALOXONE HYDROCHLORIDE
     Indication: TOXICITY TO VARIOUS AGENTS
     Route: 030

REACTIONS (1)
  - Non-cardiogenic pulmonary oedema [Recovered/Resolved]
